FAERS Safety Report 5074884-0 (Version None)
Quarter: 2006Q3

REPORT INFORMATION
  Report Type: 
  Country: None (occurrence: None)
  Receive Date: 20060717
  Receipt Date: 20051103
  Transmission Date: 20061208
  Serious: No
  Sender: FDA-Public Use
  Company Number: 2005002162

PATIENT
  Age: 62 Year
  Sex: Male

DRUGS (3)
  1. TARCEVA [Suspect]
     Indication: RENAL CELL CARCINOMA STAGE UNSPECIFIED
     Dosage: SEE IMAGE
     Route: 048
     Dates: start: 20051003, end: 20051011
  2. TARCEVA [Suspect]
     Indication: RENAL CELL CARCINOMA STAGE UNSPECIFIED
     Dosage: SEE IMAGE
     Route: 048
     Dates: start: 20051012
  3. AVASTIN [Concomitant]

REACTIONS (2)
  - PROTEINURIA [None]
  - RASH [None]
